FAERS Safety Report 10672309 (Version 3)
Quarter: 2015Q1

REPORT INFORMATION
  Report Type: Spontaneous
  Country: US (occurrence: US)
  Receive Date: 20141223
  Receipt Date: 20150204
  Transmission Date: 20150720
  Serious: Yes (Other)
  Sender: FDA-Public Use
  Company Number: US-GLAXOSMITHKLINE INC.-US2014GSK040225

PATIENT
  Age: 40 Year
  Sex: Female

DRUGS (2)
  1. ADVIL [Concomitant]
     Active Substance: IBUPROFEN
  2. RELENZA [Suspect]
     Active Substance: ZANAMIVIR
     Indication: PYREXIA
     Dosage: 2 PUFF(S), QD
     Route: 055
     Dates: start: 20141119, end: 201411

REACTIONS (5)
  - Pneumonia [Recovered/Resolved]
  - Cough [Recovering/Resolving]
  - Drug ineffective [Unknown]
  - Aphonia [Recovering/Resolving]
  - Product quality issue [Unknown]

NARRATIVE: CASE EVENT DATE: 201411
